FAERS Safety Report 4621782-X (Version None)
Quarter: 2005Q1

REPORT INFORMATION
  Report Type: 
  Country: None (occurrence: None)
  Receive Date: 20050329
  Receipt Date: 20040521
  Transmission Date: 20050727
  Serious: Yes (Hospitalization)
  Sender: FDA-Public Use
  Company Number: AU-ROCHE-368469

PATIENT
  Age: 62 Year
  Sex: Female

DRUGS (65)
  1. MYCOPHENOLATE MOFETIL [Suspect]
     Route: 065
     Dates: start: 20040512, end: 20040522
  2. MYCOPHENOLATE MOFETIL [Suspect]
     Route: 065
     Dates: start: 20040523, end: 20040616
  3. MYCOPHENOLATE MOFETIL [Suspect]
     Route: 065
     Dates: start: 20040617, end: 20040709
  4. MYCOPHENOLATE MOFETIL [Suspect]
     Route: 065
     Dates: start: 20040710, end: 20040811
  5. MYCOPHENOLATE MOFETIL [Suspect]
     Route: 065
     Dates: start: 20040812, end: 20040817
  6. MYCOPHENOLATE MOFETIL [Suspect]
     Route: 065
     Dates: start: 20040831, end: 20040901
  7. MYCOPHENOLATE MOFETIL [Suspect]
     Route: 065
     Dates: start: 20040902, end: 20040903
  8. MYCOPHENOLATE MOFETIL [Suspect]
     Route: 065
     Dates: start: 20040904, end: 20041018
  9. MYCOPHENOLATE MOFETIL [Suspect]
     Dosage: TO ACHIEVE TARGET AUC.
     Route: 065
     Dates: start: 20041019, end: 20041114
  10. MYCOPHENOLATE MOFETIL [Suspect]
     Dosage: DOSE INCREASED BACK TO PROTOCOL.
     Route: 065
     Dates: start: 20041115, end: 20041201
  11. MYCOPHENOLATE MOFETIL [Suspect]
     Route: 065
     Dates: start: 20041202
  12. CYCLOSPORINE [Suspect]
     Route: 065
     Dates: start: 20040515, end: 20040520
  13. CYCLOSPORINE [Suspect]
     Route: 065
     Dates: start: 20040512, end: 20040512
  14. CYCLOSPORINE [Suspect]
     Route: 065
     Dates: start: 20040513, end: 20040513
  15. CYCLOSPORINE [Suspect]
     Dosage: 275MG IN THE MORNING AND 350MG IN THE EVENING
     Route: 065
     Dates: start: 20040514, end: 20040514
  16. CYCLOSPORINE [Suspect]
     Dosage: 350 MG QAM, 325 MG QPM.
     Route: 065
     Dates: start: 20040521, end: 20040522
  17. CYCLOSPORINE [Suspect]
     Dosage: 350 MG QAM, 300 MG QPM
     Route: 065
     Dates: start: 20040523, end: 20040523
  18. CYCLOSPORINE [Suspect]
     Route: 065
     Dates: start: 20040524, end: 20040524
  19. CYCLOSPORINE [Suspect]
     Dosage: 200 MG QAM, 225 MG QPM
     Route: 065
     Dates: start: 20040525, end: 20040525
  20. CYCLOSPORINE [Suspect]
     Route: 065
     Dates: start: 20040526, end: 20040527
  21. CYCLOSPORINE [Suspect]
     Route: 065
     Dates: start: 20040528, end: 20040604
  22. CYCLOSPORINE [Suspect]
     Dosage: 125 MG QAM, 150 MG QPM
     Route: 065
     Dates: start: 20040605, end: 20040605
  23. CYCLOSPORINE [Suspect]
     Route: 065
     Dates: start: 20040606, end: 20040612
  24. CYCLOSPORINE [Suspect]
     Dosage: 150 MG QAM, 125 MG QPM
     Route: 065
     Dates: start: 20040613, end: 20040617
  25. CYCLOSPORINE [Suspect]
     Dosage: 125 MG QAM, 100 MG QPM
     Route: 065
     Dates: start: 20040618, end: 20040701
  26. CYCLOSPORINE [Suspect]
     Route: 065
     Dates: start: 20040702, end: 20040708
  27. CYCLOSPORINE [Suspect]
     Dosage: 125 MG QAM, 100 MG QPM
     Route: 065
     Dates: start: 20040709, end: 20040716
  28. CYCLOSPORINE [Suspect]
     Route: 065
     Dates: start: 20040717, end: 20040721
  29. CYCLOSPORINE [Suspect]
     Dosage: 125 MG QAM, 100 MG QPM
     Route: 065
     Dates: start: 20040722, end: 20040809
  30. CYCLOSPORINE [Suspect]
     Dosage: 150 MG AM AND 100 MG PM.
     Route: 065
     Dates: start: 20040810, end: 20040810
  31. CYCLOSPORINE [Suspect]
     Route: 065
     Dates: start: 20040811, end: 20040822
  32. CYCLOSPORINE [Suspect]
     Dosage: 100 MG AM AND 125 MG PM.
     Route: 065
     Dates: start: 20040823, end: 20040824
  33. CYCLOSPORINE [Suspect]
     Route: 065
     Dates: start: 20040825, end: 20040831
  34. CYCLOSPORINE [Suspect]
     Route: 065
     Dates: start: 20040901, end: 20040901
  35. CYCLOSPORINE [Suspect]
     Route: 065
     Dates: start: 20040902, end: 20040903
  36. CYCLOSPORINE [Suspect]
     Dosage: 125 MG AM AND 100 MG PM.
     Route: 065
     Dates: start: 20040904, end: 20040905
  37. CYCLOSPORINE [Suspect]
     Route: 065
     Dates: start: 20040906, end: 20040907
  38. CYCLOSPORINE [Suspect]
     Route: 065
     Dates: start: 20040910, end: 20040911
  39. CYCLOSPORINE [Suspect]
     Route: 065
     Dates: start: 20040912, end: 20040912
  40. CYCLOSPORINE [Suspect]
     Route: 065
     Dates: start: 20040913, end: 20040921
  41. CYCLOSPORINE [Suspect]
     Dosage: 125 MG AM AND 100 MG PM.
     Route: 065
     Dates: start: 20040922, end: 20040926
  42. CYCLOSPORINE [Suspect]
     Route: 065
     Dates: start: 20040927, end: 20041212
  43. CYCLOSPORINE [Suspect]
     Dosage: 100 MG AM - 75 MG PM.
     Route: 065
     Dates: start: 20041213
  44. METHYLPREDNISOLONE [Suspect]
     Route: 065
     Dates: start: 20040512, end: 20040513
  45. PREDNISOLONE [Suspect]
     Route: 065
     Dates: start: 20040514, end: 20040622
  46. PREDNISOLONE [Suspect]
     Route: 065
     Dates: start: 20040623, end: 20040630
  47. PREDNISOLONE [Suspect]
     Route: 065
     Dates: start: 20040701, end: 20040706
  48. PREDNISOLONE [Suspect]
     Route: 065
     Dates: start: 20040707, end: 20040714
  49. PREDNISOLONE [Suspect]
     Route: 065
     Dates: start: 20040715, end: 20040725
  50. PREDNISOLONE [Suspect]
     Route: 065
     Dates: start: 20040726, end: 20040729
  51. PREDNISOLONE [Suspect]
     Route: 065
     Dates: start: 20040730, end: 20040805
  52. PREDNISOLONE [Suspect]
     Route: 065
     Dates: start: 20040806, end: 20040811
  53. PREDNISOLONE [Suspect]
     Route: 065
     Dates: start: 20040812, end: 20040817
  54. PREDNISOLONE [Suspect]
     Route: 065
     Dates: start: 20040818, end: 20040826
  55. PREDNISOLONE [Suspect]
     Route: 065
     Dates: start: 20040827, end: 20041114
  56. PREDNISOLONE [Suspect]
     Route: 065
     Dates: start: 20041115, end: 20050210
  57. PREDNISOLONE [Suspect]
     Route: 065
     Dates: start: 20040211
  58. COTRIM [Concomitant]
     Dates: start: 20040513
  59. TIMENTIN [Concomitant]
     Dates: start: 20040512, end: 20040512
  60. ACTRAPID [Concomitant]
     Dates: start: 20040513, end: 20040515
  61. AMOXICILLIN [Concomitant]
     Dosage: THE TREATMENT WAS STOPPED ON 08 JUNE 2004 AND WAS RESTARTED ON 25 JUNE 2004.
     Dates: start: 20040603, end: 20040709
  62. CEPHALEXIN [Concomitant]
     Indication: URINARY TRACT INFECTION
     Dates: start: 20040527, end: 20040603
  63. VALGANCICLOVIR [Concomitant]
     Dates: start: 20040710, end: 20040917
  64. VALACYCLOVIR HCL [Concomitant]
     Dates: start: 20040709, end: 20040709
  65. BLOOD, PACKED RED CELLS [Concomitant]
     Dates: start: 20040514, end: 20040514

REACTIONS (13)
  - ANAEMIA [None]
  - BLOOD CHOLESTEROL INCREASED [None]
  - BLOOD TRIGLYCERIDES INCREASED [None]
  - CALCULUS URETERIC [None]
  - CELLULITIS [None]
  - COMPLICATIONS OF TRANSPLANT SURGERY [None]
  - CYTOMEGALOVIRUS INFECTION [None]
  - HAEMATOMA [None]
  - LEUKOPENIA [None]
  - LIVER FUNCTION TEST ABNORMAL [None]
  - LOW DENSITY LIPOPROTEIN INCREASED [None]
  - LYMPHOCELE [None]
  - STAPHYLOCOCCAL INFECTION [None]
